FAERS Safety Report 25534435 (Version 2)
Quarter: 2025Q3

REPORT INFORMATION
  Report Type: Spontaneous
  Country: US (occurrence: US)
  Receive Date: 20250709
  Receipt Date: 20250725
  Transmission Date: 20251021
  Serious: Yes (Other)
  Sender: CHATTEM
  Company Number: US-OPELLA-2025OHG019875

PATIENT
  Age: 72 Year
  Sex: Female

DRUGS (1)
  1. GOLD BOND ORIGINAL STRENGTH [Suspect]
     Active Substance: MENTHOL
     Indication: Product used for unknown indication
     Route: 065

REACTIONS (6)
  - Ovarian cancer [Unknown]
  - Metastases to peritoneum [Unknown]
  - Metastases to retroperitoneum [Unknown]
  - Meningioma [Unknown]
  - Pleural mesothelioma malignant [Unknown]
  - Epithelioid mesothelioma [Unknown]

NARRATIVE: CASE EVENT DATE: 20160514
